FAERS Safety Report 20371788 (Version 1)
Quarter: 2022Q1

REPORT INFORMATION
  Report Type: Report from Study
  Country: CA (occurrence: CA)
  Receive Date: 20220124
  Receipt Date: 20220124
  Transmission Date: 20220423
  Serious: Yes (Other)
  Sender: FDA-Public Use
  Company Number: CA-FERRINGPH-2021FE08404

PATIENT
  Age: 72 Year
  Sex: Male

DRUGS (4)
  1. DEGARELIX [Suspect]
     Active Substance: DEGARELIX
     Indication: Hormone-dependent prostate cancer
     Dosage: 80 MG, MONTHLY
     Route: 065
     Dates: start: 20210921
  2. DEGARELIX [Suspect]
     Active Substance: DEGARELIX
     Dosage: 240 MG, ONCE/SINGLE
     Route: 065
     Dates: start: 20210824, end: 20210824
  3. DEGARELIX [Suspect]
     Active Substance: DEGARELIX
     Dosage: 80 MG
     Route: 065
     Dates: start: 20200616
  4. DEGARELIX [Suspect]
     Active Substance: DEGARELIX
     Dosage: 240 MG, ONCE/SINGLE
     Route: 065
     Dates: start: 20200519, end: 20200519

REACTIONS (8)
  - Diabetes mellitus [Not Recovered/Not Resolved]
  - Fall [Unknown]
  - Contusion [Unknown]
  - Decreased appetite [Unknown]
  - Taste disorder [Unknown]
  - Abnormal dreams [Unknown]
  - Blood glucose decreased [Unknown]
  - Fatigue [Unknown]

NARRATIVE: CASE EVENT DATE: 20210101
